FAERS Safety Report 17100620 (Version 2)
Quarter: 2019Q4

REPORT INFORMATION
  Report Type: Spontaneous
  Country: NL (occurrence: NL)
  Receive Date: 20191202
  Receipt Date: 20191205
  Transmission Date: 20200122
  Serious: Yes (Hospitalization)
  Sender: FDA-Public Use
  Company Number: NL-MYLANLABS-2019M1065303

PATIENT
  Age: 50 Year
  Sex: Female

DRUGS (2)
  1. TOPIRAMATE. [Suspect]
     Active Substance: TOPIRAMATE
     Indication: MIGRAINE
     Dosage: 15 MG, BID
     Route: 048
     Dates: start: 201501, end: 201503
  2. TOPIRAMATE. [Suspect]
     Active Substance: TOPIRAMATE
     Dosage: UNK
     Route: 065

REACTIONS (5)
  - Affective disorder [Recovered/Resolved]
  - Dehydration [Unknown]
  - Adverse drug reaction [Unknown]
  - Drug ineffective [Unknown]
  - Drug intolerance [Unknown]
